FAERS Safety Report 7095082-5 (Version None)
Quarter: 2010Q4

REPORT INFORMATION
  Report Type: 
  Country: None (occurrence: None)
  Receive Date: 20101111
  Receipt Date: 20101104
  Transmission Date: 20110411
  Serious: No
  Sender: FDA-Public Use
  Company Number: US-BIOGENIDEC-2010BI039063

PATIENT
  Sex: Female

DRUGS (2)
  1. TYSABRI [Suspect]
     Indication: MULTIPLE SCLEROSIS
     Route: 042
     Dates: start: 20080107, end: 20080823
  2. TYSABRI [Suspect]
     Route: 042
     Dates: start: 20090502

REACTIONS (5)
  - OPEN WOUND [None]
  - PAIN OF SKIN [None]
  - PRURITUS [None]
  - SKIN BURNING SENSATION [None]
  - SKIN EXFOLIATION [None]
